FAERS Safety Report 8778653 (Version 1)
Quarter: 2012Q4

REPORT INFORMATION
  Report Type: 
  Country: US (occurrence: US)
  Receive Date: 20120913
  Receipt Date: 20120913
  Transmission Date: 20130627
  Serious: No
  Sender: FDA-Public Use
  Company Number: US-B.I. PHARMACEUTICALS,INC./RIDGEFIELD-2012-BP-21561BP

PATIENT
  Age: 74 Year
  Sex: Male
  Weight: 93 kg

DRUGS (5)
  1. SPIRIVA [Suspect]
     Indication: CHRONIC OBSTRUCTIVE PULMONARY DISEASE
     Dosage: 18 mcg
     Route: 055
     Dates: start: 201109
  2. SPIRIVA [Suspect]
     Route: 048
     Dates: start: 20120905, end: 20120905
  3. LIPITOR [Concomitant]
     Indication: BLOOD CHOLESTEROL INCREASED
     Dosage: 75 mg
     Route: 048
     Dates: start: 201109
  4. ASPRIN [Concomitant]
     Indication: CARDIAC DISORDER
     Dosage: 325 mg
     Route: 048
     Dates: start: 201002
  5. PRIMIDONE [Concomitant]
     Indication: TREMOR
     Dosage: 100 mg
     Route: 048
     Dates: start: 2007

REACTIONS (1)
  - Incorrect route of drug administration [Recovered/Resolved]
